FAERS Safety Report 6604377-8 (Version None)
Quarter: 2010Q1

REPORT INFORMATION
  Report Type: 
  Country: None (occurrence: None)
  Receive Date: 20100226
  Receipt Date: 20091019
  Transmission Date: 20100710
  Serious: No
  Sender: FDA-Public Use
  Company Number: A0806553A

PATIENT
  Age: 39 Year
  Sex: Female

DRUGS (5)
  1. LAMICTAL CD [Suspect]
     Indication: EPILEPSY
     Dosage: 50MG PER DAY
     Route: 048
     Dates: start: 20090801, end: 20090817
  2. UNSPECIFIED MEDICATION [Concomitant]
  3. KEPPRA XR [Concomitant]
  4. MICROGESTIN 1.5/30 [Concomitant]
  5. FOLIC ACID [Concomitant]

REACTIONS (6)
  - DRUG ERUPTION [None]
  - HYPERSENSITIVITY [None]
  - PYREXIA [None]
  - RASH [None]
  - SKIN EXFOLIATION [None]
  - VOMITING [None]
